FAERS Safety Report 16055496 (Version 1)
Quarter: 2019Q1

REPORT INFORMATION
  Report Type: Spontaneous
  Country: FI (occurrence: FI)
  Receive Date: 20190311
  Receipt Date: 20190311
  Transmission Date: 20190418
  Serious: Yes (Other)
  Sender: FDA-Public Use
  Company Number: FI-GLAXOSMITHKLINE-FI2019GSK040122

PATIENT
  Age: 6 Year
  Sex: Male

DRUGS (1)
  1. AVAMYS [Suspect]
     Active Substance: FLUTICASONE FUROATE
     Indication: PRODUCT USED FOR UNKNOWN INDICATION
     Dosage: 1 DF, UNK (1 SPRAY TO BOTH NOSTRILS)

REACTIONS (7)
  - Mydriasis [Unknown]
  - Borrelia test positive [Unknown]
  - Seizure [Unknown]
  - Influenza [Unknown]
  - Fatigue [Unknown]
  - Infection [Unknown]
  - Visual impairment [Unknown]

NARRATIVE: CASE EVENT DATE: 2016
